FAERS Safety Report 5153005-X (Version None)
Quarter: 2006Q4

REPORT INFORMATION
  Report Type: 
  Country: None (occurrence: None)
  Receive Date: 20061117
  Receipt Date: 20060220
  Transmission Date: 20070319
  Serious: Yes (Hospitalization)
  Sender: FDA-Public Use
  Company Number: JP-BAYER-200610271BYL

PATIENT
  Sex: Male

DRUGS (2)
  1. AVELOX [Suspect]
     Indication: RESPIRATORY TRACT INFECTION
     Dosage: TOTAL DAILY DOSE: 400 MG  UNIT DOSE: 400 MG
     Route: 048
     Dates: start: 20060201, end: 20060201
  2. TAMIFLU [Concomitant]
     Route: 048
     Dates: start: 20060201, end: 20060201

REACTIONS (1)
  - PNEUMONIA BACTERIAL [None]
